FAERS Safety Report 9324376 (Version 2)
Quarter: 2013Q2

REPORT INFORMATION
  Report Type: Spontaneous
  Country: JP (occurrence: JP)
  Receive Date: 20130603
  Receipt Date: 20130613
  Transmission Date: 20140414
  Serious: Yes (Other)
  Sender: FDA-Public Use
  Company Number: JP-ELI_LILLY_AND_COMPANY-JP201209005549

PATIENT
  Age: 38 Year
  Sex: Female
  Weight: 63 kg

DRUGS (8)
  1. ZYPREXA [Suspect]
     Indication: BIPOLAR DISORDER
     Dosage: 20 MG, QD
     Route: 048
     Dates: start: 20080124
  2. ZYPREXA [Suspect]
     Dosage: 2.5 MG, QD
     Route: 048
  3. ZYPREXA [Suspect]
     Dosage: 5 MG, QD
     Route: 048
  4. ZYPREXA [Suspect]
     Dosage: 2.5 MG, QD
     Route: 048
  5. LITHIUM [Concomitant]
  6. DEPAKENE [Concomitant]
     Dosage: UNK
     Route: 048
  7. CERCINE [Concomitant]
     Dosage: UNK
     Route: 048
  8. RHYTHMY [Concomitant]
     Dosage: UNK
     Route: 048

REACTIONS (2)
  - Gestational hypertension [Recovered/Resolved]
  - Exposure during pregnancy [Recovered/Resolved]
